FAERS Safety Report 21114824 (Version 6)
Quarter: 2023Q1

REPORT INFORMATION
  Report Type: Spontaneous
  Country: US (occurrence: US)
  Receive Date: 20220721
  Receipt Date: 20230316
  Transmission Date: 20230417
  Serious: No
  Sender: FDA-Public Use
  Company Number: US-PFIZER INC-PV202200026449

PATIENT
  Age: 86 Year
  Sex: Female

DRUGS (1)
  1. IBRANCE [Suspect]
     Active Substance: PALBOCICLIB
     Indication: Breast cancer female
     Dosage: 125 MG

REACTIONS (19)
  - Illness [Unknown]
  - Headache [Unknown]
  - Facial pain [Unknown]
  - Bone pain [Unknown]
  - Rhinorrhoea [Not Recovered/Not Resolved]
  - Cough [Unknown]
  - Fatigue [Unknown]
  - Nasopharyngitis [Unknown]
  - Dysphonia [Unknown]
  - Breast pain [Unknown]
  - Memory impairment [Unknown]
  - Diarrhoea [Unknown]
  - Cystitis [Unknown]
  - Herpes zoster [Unknown]
  - Disease recurrence [Unknown]
  - Renal disorder [Unknown]
  - Liver disorder [Unknown]
  - Liver function test abnormal [Unknown]
  - Renal function test abnormal [Unknown]

NARRATIVE: CASE EVENT DATE: 20221110
